FAERS Safety Report 14124004 (Version 2)
Quarter: 2017Q4

REPORT INFORMATION
  Report Type: Spontaneous
  Country: NO (occurrence: NO)
  Receive Date: 20171025
  Receipt Date: 20171102
  Transmission Date: 20180321
  Serious: Yes (Hospitalization, Other)
  Sender: FDA-Public Use
  Company Number: NO-PFIZER INC-2017458434

PATIENT
  Age: 40 Year
  Sex: Male

DRUGS (6)
  1. RISPERDAL [Interacting]
     Active Substance: RISPERIDONE
     Indication: HALLUCINATION
     Dosage: UNK
     Dates: start: 20140227, end: 20140303
  2. QUETIAPINE. [Interacting]
     Active Substance: QUETIAPINE
     Dosage: UNK
  3. SOMAC [Suspect]
     Active Substance: PANTOPRAZOLE SODIUM
     Dosage: UNK
  4. RISPERDAL [Interacting]
     Active Substance: RISPERIDONE
     Indication: DELUSION
  5. IMOVANE [Interacting]
     Active Substance: ZOPICLONE
     Dosage: UNK
  6. LORATADINE. [Interacting]
     Active Substance: LORATADINE
     Dosage: UNK

REACTIONS (2)
  - Drug interaction [Recovering/Resolving]
  - Psychotic disorder [Recovering/Resolving]

NARRATIVE: CASE EVENT DATE: 20140227
